FAERS Safety Report 8173497-1 (Version None)
Quarter: 2012Q1

REPORT INFORMATION
  Report Type: 
  Country: None (occurrence: None)
  Receive Date: 20120224
  Receipt Date: 20120210
  Transmission Date: 20120608
  Serious: Yes (Other)
  Sender: FDA-Public Use
  Company Number: 2012-0389

PATIENT
  Age: 76 Year
  Sex: Male
  Weight: 88.5 kg

DRUGS (10)
  1. CARDURA [Concomitant]
  2. LISINOPRIL [Concomitant]
  3. MOTRIN [Concomitant]
  4. DYSPORT [Suspect]
     Indication: HEADACHE
     Dosage: 100 UNITES (100 UNITES, SINGLE CYCLE), PARENTERAL
     Route: 051
     Dates: start: 20111121, end: 20111121
  5. DYSPORT [Suspect]
     Indication: HEADACHE
     Dosage: 100 UNITES (100 UNITES, SINGLE CYCLE), PARENTERAL
     Route: 051
     Dates: start: 20111111, end: 20111111
  6. HYDROCHLOROTHIAZIDE [Concomitant]
  7. ANTIFUNGAL (UNSPECIFIED) (ANTIFUNGALS) [Concomitant]
  8. NORVASC [Concomitant]
  9. LIPITOR [Concomitant]
  10. PRILOSEC [Concomitant]

REACTIONS (6)
  - INAPPROPRIATE SCHEDULE OF DRUG ADMINISTRATION [None]
  - DYSPHAGIA [None]
  - DYSARTHRIA [None]
  - DRUG INEFFECTIVE [None]
  - DRY MOUTH [None]
  - TRANSIENT ISCHAEMIC ATTACK [None]
